FAERS Safety Report 12660427 (Version 1)
Quarter: 2016Q3

REPORT INFORMATION
  Report Type: Report from Study
  Country: US (occurrence: US)
  Receive Date: 20160817
  Receipt Date: 20160817
  Transmission Date: 20161109
  Serious: Yes (Other)
  Sender: FDA-Public Use
  Company Number: US-SAOL THERAPEUTICS-2016SAO00421

PATIENT
  Age: 56 Year
  Sex: Female

DRUGS (8)
  1. COMPOUNDED BACLOFEN [Suspect]
     Active Substance: BACLOFEN
     Dosage: 99.92 ?G, \DAY
     Route: 037
     Dates: start: 20160203
  2. BUPIVACAINE. [Suspect]
     Active Substance: BUPIVACAINE
     Dosage: 5.995 MG, \DAY
     Route: 037
     Dates: start: 20160203
  3. CLONIDINE. [Suspect]
     Active Substance: CLONIDINE
     Dosage: 139.01 ?G, \DAY
     Route: 037
     Dates: start: 20160203
  4. BUPIVACAINE. [Suspect]
     Active Substance: BUPIVACAINE
     Dosage: 8.341 MG, \DAY
     Route: 037
     Dates: start: 20160203
  5. DILAUDID [Suspect]
     Active Substance: HYDROMORPHONE HYDROCHLORIDE
     Dosage: 1.998 MG, \DAY
     Route: 037
     Dates: start: 20160203
  6. CLONIDINE. [Suspect]
     Active Substance: CLONIDINE
     Dosage: 99.92 ?G, \DAY
     Route: 037
     Dates: start: 20160203
  7. DILAUDID [Suspect]
     Active Substance: HYDROMORPHONE HYDROCHLORIDE
     Dosage: 2.780 MG, \DAY
     Route: 037
     Dates: start: 20160203
  8. COMPOUNDED BACLOFEN [Suspect]
     Active Substance: BACLOFEN
     Dosage: 139.01 ?G, \DAY
     Route: 037
     Dates: start: 20160203

REACTIONS (2)
  - Respiratory distress [Unknown]
  - Hypertension [Unknown]

NARRATIVE: CASE EVENT DATE: 20160203
